FAERS Safety Report 4421010-4 (Version None)
Quarter: 2004Q3

REPORT INFORMATION
  Report Type: 
  Country: None (occurrence: None)
  Receive Date: 20040809
  Receipt Date: 20040629
  Transmission Date: 20050211
  Serious: Yes (Life-Threatening, Hospitalization)
  Sender: FDA-Public Use
  Company Number: JP-GLAXOSMITHKLINE-B0337412A

PATIENT
  Age: 59 Year
  Sex: Male
  Weight: 71 kg

DRUGS (9)
  1. VALTREX [Suspect]
     Indication: HERPES ZOSTER
     Dosage: 1000MG THREE TIMES PER DAY
     Route: 048
     Dates: start: 20040625, end: 20040627
  2. CLOFEKTON [Suspect]
     Indication: SCHIZOPHRENIA
     Dosage: 25MG THREE TIMES PER DAY
     Route: 048
  3. NEULEPTIL [Suspect]
     Indication: SCHIZOPHRENIA
     Dosage: 5MG THREE TIMES PER DAY
     Route: 048
  4. AKINETON [Suspect]
     Indication: SCHIZOPHRENIA
     Dosage: 2MG THREE TIMES PER DAY
     Route: 048
  5. LINTON (JAPAN) [Concomitant]
     Indication: SCHIZOPHRENIA
     Dosage: 9MG PER DAY
     Route: 048
  6. BENZALIN [Concomitant]
     Indication: SCHIZOPHRENIA
     Dosage: 5MG PER DAY
     Route: 048
  7. WINTERMIN [Concomitant]
     Indication: SCHIZOPHRENIA
     Dosage: 50MG PER DAY
     Route: 048
  8. HIBERNA [Concomitant]
     Indication: SCHIZOPHRENIA
     Dosage: 25MG PER DAY
     Route: 048
  9. METLIGINE [Concomitant]
     Indication: SCHIZOPHRENIA
     Dosage: 4MG PER DAY
     Route: 048

REACTIONS (4)
  - BLOOD CREATININE INCREASED [None]
  - DEPRESSED LEVEL OF CONSCIOUSNESS [None]
  - DYSKINESIA [None]
  - RENAL FAILURE [None]
